FAERS Safety Report 4387539-2 (Version None)
Quarter: 2004Q2

REPORT INFORMATION
  Report Type: 
  Country: None (occurrence: None)
  Receive Date: 20040630
  Receipt Date: 20040505
  Transmission Date: 20050107
  Serious: No
  Sender: FDA-Public Use
  Company Number: US-GLAXOSMITHKLINE-A0509749A

PATIENT
  Age: 58 Year
  Sex: Male
  Weight: 81.8 kg

DRUGS (9)
  1. ADVAIR HFA [Suspect]
     Indication: ASTHMA
     Route: 055
     Dates: start: 20040429, end: 20040505
  2. ALLEGRA-D [Concomitant]
     Route: 048
  3. FLONASE [Concomitant]
     Route: 045
  4. ZANTAC [Concomitant]
     Route: 048
  5. ALBUTEROL [Concomitant]
     Indication: ASTHMA
     Route: 055
  6. CARDURA [Concomitant]
     Route: 065
  7. LIPITOR [Concomitant]
     Indication: BLOOD CHOLESTEROL INCREASED
     Route: 065
  8. AFRIN [Concomitant]
     Route: 045
  9. PATANOL [Concomitant]
     Route: 065

REACTIONS (1)
  - INSOMNIA [None]
